FAERS Safety Report 13020938 (Version 1)
Quarter: 2016Q4

REPORT INFORMATION
  Report Type: Spontaneous
  Country: US (occurrence: US)
  Receive Date: 20161212
  Receipt Date: 20161212
  Transmission Date: 20170207
  Serious: No
  Sender: FDA-Public Use
  Company Number: US-AMGEN-USASP2016174113

PATIENT
  Sex: Female

DRUGS (3)
  1. SYNVISC [Suspect]
     Active Substance: HYALURONATE SODIUM
     Indication: ARTHROPATHY
     Dosage: UNK
     Route: 065
  2. SYNTHROID [Concomitant]
     Active Substance: LEVOTHYROXINE SODIUM
     Dosage: UNK
  3. ENBREL [Suspect]
     Active Substance: ETANERCEPT
     Indication: RHEUMATOID ARTHRITIS
     Dosage: 25 MG TWO INJECTION A WEEK
     Route: 065

REACTIONS (4)
  - Bunion operation [Unknown]
  - Drug ineffective [Unknown]
  - Arthropathy [Unknown]
  - Condition aggravated [Unknown]
